FAERS Safety Report 21003324 (Version 1)
Quarter: 2022Q2

REPORT INFORMATION
  Report Type: Spontaneous
  Country: US (occurrence: US)
  Receive Date: 20220624
  Receipt Date: 20220624
  Transmission Date: 20220721
  Serious: No
  Sender: FDA-Public Use
  Company Number: US-VERTEX PHARMACEUTICALS-2022-009297

PATIENT
  Age: 70 Year
  Sex: Male

DRUGS (8)
  1. TRIKAFTA [Suspect]
     Active Substance: ELEXACAFTOR\IVACAFTOR\TEZACAFTOR
     Indication: Cystic fibrosis
     Dosage: 2 ORANGE TABLETS AM; 1 BLUE TABLET PM
     Route: 048
     Dates: start: 20191227
  2. ALENDRONATE [Concomitant]
     Active Substance: ALENDRONATE SODIUM
  3. FLAGYL [Concomitant]
     Active Substance: METRONIDAZOLE\METRONIDAZOLE HYDROCHLORIDE
  4. LEVAQUIN [Concomitant]
     Active Substance: LEVOFLOXACIN
  5. LINEZOLID [Concomitant]
     Active Substance: LINEZOLID
  6. LUTEIN [Concomitant]
     Active Substance: LUTEIN
  7. ZYVOX [Concomitant]
     Active Substance: LINEZOLID
  8. INSULIN NOS [Concomitant]
     Active Substance: INSULIN NOS

REACTIONS (1)
  - Blood glucose decreased [Not Recovered/Not Resolved]

NARRATIVE: CASE EVENT DATE: 20220616
